FAERS Safety Report 23875025 (Version 1)
Quarter: 2024Q2

REPORT INFORMATION
  Report Type: Spontaneous
  Country: US (occurrence: None)
  Receive Date: 20240518
  Receipt Date: 20240518
  Transmission Date: 20240715
  Serious: No
  Sender: FDA-Public Use
  Company Number: None

PATIENT
  Age: 43 Year
  Sex: Female
  Weight: 80.55 kg

DRUGS (5)
  1. WEGOVY [Suspect]
     Active Substance: SEMAGLUTIDE
     Indication: Obesity
     Dosage: OTHER QUANTITY : 1 INJECTION(S);?OTHER FREQUENCY : EACH WEEK;?
     Route: 058
     Dates: start: 20240518
  2. BUPROPION [Concomitant]
     Active Substance: BUPROPION
  3. ESCITALOPRAM [Concomitant]
     Active Substance: ESCITALOPRAM OXALATE
  4. WEGOVY [Concomitant]
     Active Substance: SEMAGLUTIDE
  5. Multi vitamin gummies [Concomitant]

REACTIONS (4)
  - Oropharyngeal pain [None]
  - Sensitive skin [None]
  - Pain [None]
  - Influenza [None]

NARRATIVE: CASE EVENT DATE: 20240518
